FAERS Safety Report 15977251 (Version 1)
Quarter: 2019Q1

REPORT INFORMATION
  Report Type: Spontaneous
  Country: CA (occurrence: CA)
  Receive Date: 20190218
  Receipt Date: 20190218
  Transmission Date: 20190418
  Serious: Yes (Other)
  Sender: FDA-Public Use
  Company Number: CA-ELI_LILLY_AND_COMPANY-CA201902005984

PATIENT
  Age: 55 Year
  Sex: Female
  Weight: 76 kg

DRUGS (2)
  1. ADCIRCA [Suspect]
     Active Substance: TADALAFIL
     Indication: PULMONARY ARTERIAL HYPERTENSION
     Dosage: 40 MG, UNKNOWN
     Route: 065
  2. VOLIBRIS [Suspect]
     Active Substance: AMBRISENTAN
     Indication: PULMONARY ARTERIAL HYPERTENSION
     Dosage: 10 MG, UNKNOWN
     Route: 065

REACTIONS (11)
  - Eye haemorrhage [Unknown]
  - Pyrexia [Unknown]
  - Nasopharyngitis [Unknown]
  - Sputum discoloured [Unknown]
  - Cough [Unknown]
  - Dysphonia [Unknown]
  - Abdominal pain upper [Unknown]
  - Productive cough [Unknown]
  - Oropharyngeal pain [Unknown]
  - Retinal detachment [Unknown]
  - Drug ineffective [Unknown]
